FAERS Safety Report 15394662 (Version 1)
Quarter: 2018Q4

REPORT INFORMATION
  Report Type: Spontaneous
  Country: EE (occurrence: EE)
  Receive Date: 20180918
  Receipt Date: 20180918
  Transmission Date: 20190204
  Serious: Yes (Other)
  Sender: FDA-Public Use
  Company Number: EE-ACCORD-072018

PATIENT
  Age: 45 Year
  Sex: Female

DRUGS (9)
  1. INSULIN LISPRO/INSULIN LISPRO PROTAMINE SUSPE [Concomitant]
     Indication: DIABETES MELLITUS
     Dosage: 10 U, 4-6 UU 3 X DAILY.
  2. CALCITRIOL. [Suspect]
     Active Substance: CALCITRIOL
     Indication: IMMUNOSUPPRESSION
  3. ESTRADIOL. [Concomitant]
     Active Substance: ESTRADIOL
     Indication: PRODUCT USED FOR UNKNOWN INDICATION
  4. ERYTHROPOIETIN HUMAN [Concomitant]
     Active Substance: ERYTHROPOIETIN
     Indication: PRODUCT USED FOR UNKNOWN INDICATION
     Dosage: X 1 MONTH
  5. MYCOPHENOLATE MOFETIL/MYCOPHENOLATE SODIUM/MYCOPHENOLIC ACID [Suspect]
     Active Substance: MYCOPHENOLIC ACID
     Indication: IMMUNOSUPPRESSION
  6. SEVELAMER [Suspect]
     Active Substance: SEVELAMER
     Indication: IMMUNOSUPPRESSION
  7. INSULIN DETEMIR [Concomitant]
     Active Substance: INSULIN DETEMIR
     Indication: DIABETES MELLITUS
     Dosage: 2 X DAILY 6
  8. TELMISARTAN. [Concomitant]
     Active Substance: TELMISARTAN
     Indication: PRODUCT USED FOR UNKNOWN INDICATION
     Dosage: 80 MG X 1
  9. HYDROCHLOROTHIAZIDE. [Concomitant]
     Active Substance: HYDROCHLOROTHIAZIDE
     Indication: PRODUCT USED FOR UNKNOWN INDICATION

REACTIONS (3)
  - Dermatitis [Unknown]
  - Urinary tract infection [Unknown]
  - Anaemia [Unknown]
